FAERS Safety Report 16010005 (Version 2)
Quarter: 2019Q1

REPORT INFORMATION
  Report Type: Spontaneous
  Country: AU (occurrence: AU)
  Receive Date: 20190227
  Receipt Date: 20190305
  Transmission Date: 20190418
  Serious: Yes (Other)
  Sender: FDA-Public Use
  Company Number: AU-ROCHE-2269930

PATIENT
  Sex: Female

DRUGS (1)
  1. RITUXIMAB. [Suspect]
     Active Substance: RITUXIMAB
     Indication: AUTOIMMUNE HEPATITIS
     Route: 065
     Dates: start: 2013

REACTIONS (5)
  - Ill-defined disorder [Unknown]
  - Intentional product use issue [Unknown]
  - Pyoderma gangrenosum [Unknown]
  - Autoimmune hepatitis [Unknown]
  - Off label use [Unknown]
